FAERS Safety Report 18517516 (Version 1)
Quarter: 2020Q4

REPORT INFORMATION
  Report Type: Spontaneous
  Country: FR (occurrence: FR)
  Receive Date: 20201118
  Receipt Date: 20201118
  Transmission Date: 20210114
  Serious: Yes (Hospitalization)
  Sender: FDA-Public Use
  Company Number: FR-TEVA-2020-FR-1848686

PATIENT
  Age: 86 Year
  Sex: Male

DRUGS (9)
  1. ENALAPRIL (MALEATE D^) [Suspect]
     Active Substance: ENALAPRIL MALEATE
     Indication: HYPERTENSION
     Route: 048
     Dates: end: 20200929
  2. CHIBRO CADRON [Concomitant]
     Active Substance: DEXAMETHASONE SODIUM PHOSPHATE\NEOMYCIN SULFATE
  3. DOLIPRANE [Concomitant]
     Active Substance: ACETAMINOPHEN
     Indication: PRODUCT USED FOR UNKNOWN INDICATION
     Route: 048
  4. FUROSEMIDE. [Suspect]
     Active Substance: FUROSEMIDE
     Indication: HYPERTENSION
     Route: 048
     Dates: end: 20200929
  5. ASPEGIC [Concomitant]
     Indication: CARDIOMYOPATHY
     Route: 048
  6. ALLOPURINOL ARROW 100 MG, COMPRIME [Concomitant]
     Active Substance: ALLOPURINOL
     Route: 048
  7. PRAVASTATINE SODIQUE [Concomitant]
     Active Substance: PRAVASTATIN SODIUM
     Indication: PRODUCT USED FOR UNKNOWN INDICATION
     Route: 048
  8. BCG-MEDAC [Suspect]
     Active Substance: BACILLUS CALMETTE-GUERIN ANTIGEN, UNSPECIFIED SUBSTRAIN
     Indication: BLADDER TRANSITIONAL CELL CARCINOMA
     Route: 043
     Dates: start: 201912, end: 20200925
  9. SILODOSINE [Concomitant]
     Active Substance: SILODOSIN
     Indication: PRODUCT USED FOR UNKNOWN INDICATION
     Route: 048

REACTIONS (1)
  - Acute kidney injury [Recovering/Resolving]

NARRATIVE: CASE EVENT DATE: 20200929
